FAERS Safety Report 4472244-4 (Version None)
Quarter: 2004Q4

REPORT INFORMATION
  Report Type: 
  Country: None (occurrence: None)
  Receive Date: 20041012
  Receipt Date: 20041007
  Transmission Date: 20050328
  Serious: Yes (Life-Threatening, Hospitalization, Disabling)
  Sender: FDA-Public Use
  Company Number: US-MERCK-0410USA01023

PATIENT
  Age: 55 Year
  Sex: Female

DRUGS (6)
  1. DARVOCET-N 100 [Concomitant]
     Route: 065
  2. COMBIVENT [Concomitant]
     Route: 065
  3. ALLEGRA [Concomitant]
     Route: 065
  4. GUAIFENESIN [Concomitant]
     Route: 065
  5. PAXIL [Concomitant]
     Route: 065
  6. VIOXX [Suspect]
     Indication: OSTEOARTHRITIS
     Route: 048
     Dates: start: 19990101, end: 20030817

REACTIONS (2)
  - ARTERIAL OCCLUSIVE DISEASE [None]
  - MYOCARDIAL INFARCTION [None]
